FAERS Safety Report 8910489 (Version 1)
Quarter: 2012Q4

REPORT INFORMATION
  Report Type: 
  Country: GB (occurrence: GB)
  Receive Date: 20121115
  Receipt Date: 20121115
  Transmission Date: 20130627
  Serious: Yes (Life-Threatening, Other)
  Sender: FDA-Public Use
  Company Number: GB-AMGEN-GBRSP2012071948

PATIENT
  Age: 63 Year
  Sex: Female

DRUGS (16)
  1. ENBREL [Suspect]
     Indication: RHEUMATOID ARTHRITIS
     Dosage: 25 mg, twice weekly
     Route: 058
     Dates: start: 20030102, end: 20120906
  2. LANSOPRAZOLE [Concomitant]
     Dosage: UNK
  3. METHOTREXATE [Concomitant]
     Dosage: UNK
  4. INSULIN [Concomitant]
     Dosage: UNK
  5. FOLIC ACID [Concomitant]
     Dosage: UNK
  6. ACICLOVIR [Concomitant]
     Dosage: UNK
  7. CO-AMILOFRUSE [Concomitant]
     Dosage: UNK UNK, UNK
  8. TERIPARATIDE [Concomitant]
     Dosage: UNK
     Route: 058
  9. FERROUS FUMARATE [Concomitant]
     Dosage: UNK
  10. PREDNISOLONE [Concomitant]
     Dosage: UNK
  11. ADCAL                              /00056901/ [Concomitant]
     Dosage: UNK UNK, UNK
  12. BEZAFIBRATE [Concomitant]
     Dosage: UNK
  13. NITROFURANTOIN [Concomitant]
     Dosage: UNK
  14. MEBEVERINE [Concomitant]
     Dosage: UNK
  15. TRAMADOL [Concomitant]
     Dosage: UNK
  16. PARACETAMOL [Concomitant]
     Dosage: UNK

REACTIONS (2)
  - Colon cancer [Unknown]
  - Colon cancer [Unknown]
